FAERS Safety Report 6055592-6 (Version None)
Quarter: 2009Q1

REPORT INFORMATION
  Report Type: 
  Country: None (occurrence: None)
  Receive Date: 20090123
  Receipt Date: 20090112
  Transmission Date: 20090719
  Serious: Yes (Disabling)
  Sender: FDA-Public Use
  Company Number: OSCN-PR-0901S-0013

PATIENT
  Sex: Female

DRUGS (1)
  1. OMNISCAN [Suspect]
     Indication: ABDOMINAL PAIN LOWER
     Dosage: NR, SINGLE DOSE
     Dates: start: 20061229, end: 20061229

REACTIONS (1)
  - NEPHROGENIC SYSTEMIC FIBROSIS [None]
